FAERS Safety Report 19497703 (Version 1)
Quarter: 2021Q3

REPORT INFORMATION
  Report Type: Spontaneous
  Country: CN (occurrence: CN)
  Receive Date: 20210706
  Receipt Date: 20210706
  Transmission Date: 20211014
  Serious: Yes (Other)
  Sender: FDA-Public Use
  Company Number: CN-ASTRAZENECA-2021A576939

PATIENT
  Age: 21127 Day
  Sex: Male
  Weight: 77 kg

DRUGS (1)
  1. BRILINTA [Suspect]
     Active Substance: TICAGRELOR
     Indication: SYMPTOMATIC TREATMENT
     Route: 048
     Dates: start: 20210308, end: 20210309

REACTIONS (2)
  - Dizziness [Recovering/Resolving]
  - Asphyxia [Recovering/Resolving]

NARRATIVE: CASE EVENT DATE: 20210308
